FAERS Safety Report 4315322-2 (Version None)
Quarter: 2004Q1

REPORT INFORMATION
  Report Type: 
  Country: None (occurrence: None)
  Receive Date: 20040309
  Receipt Date: 20040224
  Transmission Date: 20041129
  Serious: Yes (Hospitalization)
  Sender: FDA-Public Use
  Company Number: 03P-167-0243451-00

PATIENT
  Age: 44 Year
  Sex: Male
  Weight: 102 kg

DRUGS (11)
  1. HUMIRA [Suspect]
     Indication: ANKYLOSING SPONDYLITIS
     Dosage: 40 MG, 1 IN 2 WK, SUBCUTANEOUS
     Route: 058
     Dates: start: 20030320
  2. ACETAMINOPHEN W/ CODEINE [Concomitant]
  3. TRAMADOL HCL [Concomitant]
  4. ALENDRONATE SODIUM [Concomitant]
  5. DOXAZOSIN MESYLATE [Concomitant]
  6. FERROUS SULFATE TAB [Concomitant]
  7. METOCLOPRAMIDE [Concomitant]
  8. OMEPRAZOLE [Concomitant]
  9. PREDNISOLONE [Concomitant]
  10. TRAMALE [Concomitant]
  11. ARCOXIA [Concomitant]

REACTIONS (4)
  - ABDOMINAL MASS [None]
  - DIARRHOEA [None]
  - RECTAL HAEMORRHAGE [None]
  - URINARY RETENTION [None]
